FAERS Safety Report 8576543-6 (Version None)
Quarter: 2012Q3

REPORT INFORMATION
  Report Type: 
  Country: None (occurrence: None)
  Receive Date: 20120725
  Receipt Date: 20120709
  Transmission Date: 20120928
  Serious: Yes (Hospitalization)
  Sender: FDA-Public Use
  Company Number: 2012AP002129

PATIENT
  Age: 16 Month
  Sex: Male

DRUGS (7)
  1. METHYLPREDNISOLONE [Suspect]
     Indication: TRANSPLANT REJECTION
     Dosage: 20 MG/KG;QD;
  2. DACLIZUMAB [Suspect]
     Indication: IMMUNOSUPPRESSANT DRUG THERAPY
  3. TACROLIMUS [Suspect]
     Indication: IMMUNOSUPPRESSANT DRUG THERAPY
  4. PREDNISOLONE [Suspect]
     Indication: IMMUNOSUPPRESSANT DRUG THERAPY
  5. PREDNISOLONE [Suspect]
     Indication: OFF LABEL USE
  6. MYCOPHENOLATE MOFETIL [Suspect]
     Indication: OFF LABEL USE
  7. MYCOPHENOLATE MOFETIL [Suspect]
     Indication: IMMUNOSUPPRESSANT DRUG THERAPY

REACTIONS (4)
  - PULMONARY OEDEMA [None]
  - CYTOMEGALOVIRUS TEST POSITIVE [None]
  - ADENOVIRAL HEPATITIS [None]
  - TRANSPLANT REJECTION [None]
